FAERS Safety Report 13494499 (Version 12)
Quarter: 2018Q3

REPORT INFORMATION
  Report Type: Spontaneous
  Country: GB (occurrence: GB)
  Receive Date: 20170428
  Receipt Date: 20180724
  Transmission Date: 20181010
  Serious: Yes (Other)
  Sender: FDA-Public Use
  Company Number: GB-SUN PHARMACEUTICAL INDUSTRIES LTD-2017RR-139230

PATIENT
  Sex: Female

DRUGS (16)
  1. LANSOPRAZOLE. [Suspect]
     Active Substance: LANSOPRAZOLE
     Indication: PRODUCT USED FOR UNKNOWN INDICATION
     Dosage: 30 MG, QD
     Route: 048
  2. COLECALCIFEROL [Suspect]
     Active Substance: CHOLECALCIFEROL
     Indication: PRODUCT USED FOR UNKNOWN INDICATION
     Dosage: 800 IU, DAILY
     Route: 048
  3. FABRAZYME [Suspect]
     Active Substance: AGALSIDASE BETA
     Dosage: UNK
     Route: 041
  4. ASPIRIN. [Suspect]
     Active Substance: ASPIRIN
     Indication: PRODUCT USED FOR UNKNOWN INDICATION
     Dosage: 75 MG, QD
     Route: 065
  5. LYRICA [Suspect]
     Active Substance: PREGABALIN
     Indication: PRODUCT USED FOR UNKNOWN INDICATION
     Dosage: 75 MG, BID
     Route: 065
  6. NEBIVOLOL. [Suspect]
     Active Substance: NEBIVOLOL
     Dosage: UNK
     Route: 065
  7. NEBIVOLOL. [Suspect]
     Active Substance: NEBIVOLOL
     Indication: BLOOD PRESSURE MEASUREMENT
     Dosage: 2.5 MG, QD
     Route: 048
  8. FULTIUM D3 [Suspect]
     Active Substance: CHOLECALCIFEROL
     Indication: PRODUCT USED FOR UNKNOWN INDICATION
     Dosage: 800 IU, QD
     Route: 065
  9. AMIODARONE [Suspect]
     Active Substance: AMIODARONE
     Indication: PRODUCT USED FOR UNKNOWN INDICATION
     Dosage: 200 MG, QD
     Route: 065
  10. CITALOPRAM [Suspect]
     Active Substance: CITALOPRAM HYDROBROMIDE
     Indication: PRODUCT USED FOR UNKNOWN INDICATION
     Dosage: 10 MG, QD
     Route: 048
  11. ACETAMINOPHEN AND CODEINE [Suspect]
     Active Substance: ACETAMINOPHEN\CODEINE PHOSPHATE
     Indication: PRODUCT USED FOR UNKNOWN INDICATION
     Dosage: DOSE 30/500MGS 4XDAILY
     Route: 048
  12. CLOPIDOGREL ZENTIVA [Suspect]
     Active Substance: CLOPIDOGREL BISULFATE
     Indication: PRODUCT USED FOR UNKNOWN INDICATION
     Dosage: 75 MG, QD
     Route: 048
  13. FABRAZYME [Suspect]
     Active Substance: AGALSIDASE BETA
     Indication: PRODUCT USED FOR UNKNOWN INDICATION
     Dosage: 50MG (GIVEN AS 35MG + 15MG), FORTNIGHTLY 35MG ? C578H24, 30/11/201 8; 15MG ? E6002H01, 31/01/2019
     Route: 041
     Dates: end: 20170420
  14. FABRAZYME [Suspect]
     Active Substance: AGALSIDASE BETA
     Dosage: 50MG (GIVEN AS 35MG + 15MG), FORTNIGHTLY 35MG ? C578H24, 30/11/201 8; 15MG ? E6002H01, 31/01/2019
     Route: 041
     Dates: end: 20170420
  15. PERINDOPRIL [Suspect]
     Active Substance: PERINDOPRIL
     Indication: PRODUCT USED FOR UNKNOWN INDICATION
     Dosage: 4 MG, QD
     Route: 048
  16. SALBUTAMOL [Suspect]
     Active Substance: ALBUTEROL
     Indication: COUGH
     Dosage: 2 DF, DAILY, INHALER VIA RESPIRATORY INHALATION
     Route: 055

REACTIONS (3)
  - Cough [Recovered/Resolved]
  - Lower respiratory tract infection [Unknown]
  - Wheezing [Unknown]
